FAERS Safety Report 7534833 (Version 4)
Quarter: 2015Q1

REPORT INFORMATION
  Report Type: Spontaneous
  Country: IT (occurrence: IT)
  Receive Date: 20100810
  Receipt Date: 20150325
  Transmission Date: 20150721
  Serious: Yes (Other)
  Sender: FDA-Public Use
  Company Number: IT-JNJFOC-20100800400

PATIENT
  Age: 49 Year
  Sex: Female

DRUGS (3)
  1. NORVIR [Suspect]
     Active Substance: RITONAVIR
     Indication: ACUTE HIV INFECTION
     Route: 048
     Dates: start: 20100521, end: 20100601
  2. PREZISTA [Suspect]
     Active Substance: DARUNAVIR ETHANOLATE
     Indication: ACUTE HIV INFECTION
     Route: 048
     Dates: start: 20100521, end: 20100601
  3. EPIVIR [Concomitant]
     Active Substance: LAMIVUDINE
     Indication: ACUTE HIV INFECTION
     Route: 048

REACTIONS (4)
  - Hyperpyrexia [Recovered/Resolved]
  - Face oedema [Recovered/Resolved]
  - Urticaria [Recovered/Resolved]
  - Periorbital oedema [Unknown]

NARRATIVE: CASE EVENT DATE: 20100601
